FAERS Safety Report 9575751 (Version 1)
Quarter: 2013Q4

REPORT INFORMATION
  Report Type: Spontaneous
  Country: US (occurrence: US)
  Receive Date: 20131001
  Receipt Date: 20131001
  Transmission Date: 20140711
  Serious: No
  Sender: FDA-Public Use
  Company Number: US-AMGEN-USASP2012056534

PATIENT
  Age: 16 Year
  Sex: Female
  Weight: 102.4 kg

DRUGS (1)
  1. PROCRIT [Suspect]
     Indication: SYNCOPE
     Dosage: 20000 IU, QWK
     Route: 058
     Dates: start: 2011

REACTIONS (1)
  - Medication error [Not Recovered/Not Resolved]
